FAERS Safety Report 14212476 (Version 1)
Quarter: 2017Q4

REPORT INFORMATION
  Report Type: Spontaneous
  Country: AU (occurrence: AU)
  Receive Date: 20171121
  Receipt Date: 20171121
  Transmission Date: 20180321
  Serious: Yes (Other)
  Sender: FDA-Public Use
  Company Number: AU-AMGEN-AUSSP2017172423

PATIENT
  Age: 88 Year
  Sex: Female

DRUGS (1)
  1. PROLIA [Suspect]
     Active Substance: DENOSUMAB
     Indication: PRODUCT USED FOR UNKNOWN INDICATION
     Dosage: UNK UNK, Q6MO
     Route: 065
     Dates: start: 20141013, end: 20150401

REACTIONS (1)
  - Spinal compression fracture [Unknown]

NARRATIVE: CASE EVENT DATE: 201612
